FAERS Safety Report 9786112 (Version 1)
Quarter: 2013Q4

REPORT INFORMATION
  Report Type: Spontaneous
  Country: US (occurrence: None)
  Receive Date: 20131224
  Receipt Date: 20131224
  Transmission Date: 20140711
  Serious: Yes (Death)
  Sender: FDA-Public Use
  Company Number: UTC-042027

PATIENT
  Age: 61 Year
  Sex: Male
  Weight: 91.81 kg

DRUGS (2)
  1. REMODULIN (1 MILLIGRAM/ MILLILITERS, INJECTION FOR INFUSION) (TREPROSTINIL SODIUM) [Suspect]
     Indication: PULMONARY ARTERIAL HYPERTENSION
     Dosage: 40.32 UG/KG (0.028 UG/KG, 1 IN 1 MIN)
     Route: 041
     Dates: start: 20120630
  2. LETAIRIS (AMBRISENTAN) (TABLETS) [Concomitant]

REACTIONS (1)
  - Death [None]
